FAERS Safety Report 8405235-9 (Version None)
Quarter: 2012Q2

REPORT INFORMATION
  Report Type: 
  Country: None (occurrence: None)
  Receive Date: 20120603
  Receipt Date: 20120525
  Transmission Date: 20120825
  Serious: Yes (Other)
  Sender: FDA-Public Use
  Company Number: JP-VERTEX PHARMACEUTICALS INC.-AE-2012-005829

PATIENT
  Age: 61 Year
  Sex: Female

DRUGS (14)
  1. TELAVIC (TELAPREVIR) [Suspect]
     Route: 048
     Dates: start: 20120328, end: 20120331
  2. PEGASYS [Concomitant]
     Route: 058
     Dates: start: 20120411, end: 20120411
  3. URSO 100 [Concomitant]
     Route: 048
  4. PRAVASTATIN SODIUM [Concomitant]
     Route: 048
  5. TELAVIC (TELAPREVIR) [Suspect]
     Indication: HEPATITIS C
     Route: 048
     Dates: start: 20120229, end: 20120306
  6. REBETOL [Concomitant]
     Route: 048
     Dates: start: 20120229, end: 20120306
  7. PEG-INTRON [Concomitant]
     Indication: HEPATITIS C
     Route: 051
     Dates: start: 20120229, end: 20120229
  8. XYZAL [Concomitant]
     Route: 048
  9. PEGASYS [Concomitant]
     Route: 058
     Dates: start: 20120425
  10. PRAVASTATIN SODIUM [Concomitant]
     Route: 048
     Dates: start: 20120229, end: 20120319
  11. REBETOL [Concomitant]
     Route: 048
     Dates: start: 20120328, end: 20120331
  12. PEG-INTRON [Concomitant]
     Route: 051
     Dates: start: 20120328, end: 20120328
  13. XYZAL [Concomitant]
     Route: 048
     Dates: start: 20120229, end: 20120319
  14. ADALAT CC [Concomitant]
     Route: 048

REACTIONS (2)
  - ASCITES [None]
  - PLEURAL EFFUSION [None]
